FAERS Safety Report 12825327 (Version 3)
Quarter: 2017Q1

REPORT INFORMATION
  Report Type: Report from Study
  Country: AU (occurrence: AU)
  Receive Date: 20161006
  Receipt Date: 20170126
  Transmission Date: 20170428
  Serious: Yes (Hospitalization, Other)
  Sender: FDA-Public Use
  Company Number: AU-REGENERON PHARMACEUTICALS, INC.-2016-22231

PATIENT

DRUGS (2)
  1. EYLEA [Suspect]
     Active Substance: AFLIBERCEPT
     Dosage: UNK
     Route: 031
     Dates: start: 20161201, end: 20161201
  2. EYLEA [Suspect]
     Active Substance: AFLIBERCEPT
     Indication: NEOVASCULAR AGE-RELATED MACULAR DEGENERATION
     Dosage: 2 MG (LOADING DOSE)
     Route: 031
     Dates: start: 20160619

REACTIONS (13)
  - Blindness unilateral [Unknown]
  - Malaise [Unknown]
  - Blindness transient [Recovered/Resolved]
  - Drug ineffective [Unknown]
  - Eye pain [Unknown]
  - Mental disorder [Unknown]
  - Cataract [Unknown]
  - Dizziness [Unknown]
  - Intraocular pressure increased [Recovered/Resolved]
  - Mental disorder [Unknown]
  - Headache [Unknown]
  - Vertigo [Unknown]
  - Feeling abnormal [Unknown]

NARRATIVE: CASE EVENT DATE: 20160620
